FAERS Safety Report 12585055 (Version 3)
Quarter: 2016Q3

REPORT INFORMATION
  Report Type: Spontaneous
  Country: US (occurrence: US)
  Receive Date: 20160723
  Receipt Date: 20160907
  Transmission Date: 20161109
  Serious: Yes (Life-Threatening, Hospitalization, Other)
  Sender: FDA-Public Use
  Company Number: US-009507513-1607USA008682

PATIENT
  Age: 52 Year
  Sex: Male
  Weight: 109 kg

DRUGS (2)
  1. THERAPEUTIC RADIOPHARMACEUTICAL (UNSPECIFIED) [Concomitant]
     Active Substance: UNSPECIFIED INGREDIENT
     Dosage: UNK
     Dates: start: 20160216, end: 20160328
  2. TEMODAR [Suspect]
     Active Substance: TEMOZOLOMIDE
     Indication: GLIOBLASTOMA
     Dosage: 170 MG, UNK
     Route: 048
     Dates: start: 20160216, end: 20160328

REACTIONS (5)
  - Delusion [Unknown]
  - Affective disorder [Unknown]
  - Febrile neutropenia [Recovered/Resolved]
  - Psychomotor hyperactivity [Unknown]
  - Malignant neoplasm progression [Unknown]

NARRATIVE: CASE EVENT DATE: 2016
